FAERS Safety Report 20840868 (Version 2)
Quarter: 2022Q2

REPORT INFORMATION
  Report Type: Spontaneous
  Country: US (occurrence: US)
  Receive Date: 20220517
  Receipt Date: 20220609
  Transmission Date: 20220721
  Serious: No
  Sender: FDA-Public Use
  Company Number: US-SUNOVION-2022SUN001530

PATIENT
  Age: 29 Year
  Sex: Female
  Weight: 58.503 kg

DRUGS (2)
  1. LATUDA [Suspect]
     Active Substance: LURASIDONE HYDROCHLORIDE
     Indication: Bipolar disorder
     Dosage: UNK
     Route: 048
     Dates: start: 20220209
  2. LATUDA [Suspect]
     Active Substance: LURASIDONE HYDROCHLORIDE
     Dosage: UNK
     Route: 048
     Dates: start: 20220510

REACTIONS (2)
  - Feeling cold [Unknown]
  - Chills [Unknown]

NARRATIVE: CASE EVENT DATE: 20220511
